FAERS Safety Report 19245021 (Version 1)
Quarter: 2021Q2

REPORT INFORMATION
  Report Type: Other
  Country: US (occurrence: US)
  Receive Date: 20210511
  Receipt Date: 20210511
  Transmission Date: 20210717
  Serious: Yes (Hospitalization, Other)
  Sender: FDA-Public Use
  Company Number: US-INVATECH-000073

PATIENT
  Age: 42 Year
  Sex: Female

DRUGS (1)
  1. VALPROIC ACID. [Suspect]
     Active Substance: VALPROIC ACID
     Indication: BIPOLAR DISORDER
     Dosage: VPA ER 500 MG TWO TIMES PER DAY

REACTIONS (5)
  - Encephalopathy [Recovered/Resolved]
  - Overdose [Unknown]
  - Condition aggravated [Recovered/Resolved]
  - Toxicity to various agents [Recovered/Resolved]
  - Hyperammonaemia [Recovered/Resolved]
